FAERS Safety Report 20772238 (Version 1)
Quarter: 2022Q2

REPORT INFORMATION
  Report Type: Spontaneous
  Country: US (occurrence: US)
  Receive Date: 20220502
  Receipt Date: 20220502
  Transmission Date: 20220721
  Serious: Yes (Hospitalization, Other)
  Sender: FDA-Public Use
  Company Number: US-TWI PHARMACEUTICAL, INC-2022SCTW000040

PATIENT

DRUGS (2)
  1. BUPROPION HYDROCHLORIDE XL [Suspect]
     Active Substance: BUPROPION HYDROCHLORIDE
     Indication: Euphoric mood
     Dosage: CRUSHING AND INSUFFLATING 8 TO 9 RANDOM COMBINATIONS OF 150 MG AND 300 MG TABLETS, EVERY OTHER DAY F
  2. BUPROPION HYDROCHLORIDE XL [Suspect]
     Active Substance: BUPROPION HYDROCHLORIDE
     Indication: Euphoric mood
     Dosage: CRUSHING AND INSUFFLATING 8 TO 9 RANDOM COMBINATIONS OF 150 MG AND 300 MG TABLETS, EVERY OTHER DAY F

REACTIONS (9)
  - Hyponatraemia [Recovered/Resolved]
  - Drug abuse [Unknown]
  - Suicidal ideation [Recovered/Resolved]
  - Hallucination, visual [Recovered/Resolved]
  - Hallucination, auditory [Recovered/Resolved]
  - Wrong technique in product usage process [Unknown]
  - Intentional product use issue [Unknown]
  - Prescription drug used without a prescription [Unknown]
  - Intentional overdose [Unknown]
